FAERS Safety Report 9895235 (Version 2)
Quarter: 2014Q1

REPORT INFORMATION
  Report Type: Spontaneous
  Country: US (occurrence: US)
  Receive Date: 20140213
  Receipt Date: 20140213
  Transmission Date: 20141002
  Serious: No
  Sender: FDA-Public Use
  Company Number: US-BRISTOL-MYERS SQUIBB COMPANY-17268376

PATIENT
  Age: 54 Year
  Sex: Female

DRUGS (4)
  1. ABATACEPT SUBQ INJECTION 125MG/ML [Suspect]
     Indication: RHEUMATOID ARTHRITIS
     Dosage: LAST DOSE-27SEP12
     Route: 058
     Dates: start: 201207, end: 201209
  2. METHOTREXATE [Concomitant]
     Route: 058
  3. FOLATE [Concomitant]
  4. CELEBREX [Concomitant]

REACTIONS (3)
  - Lip pain [Recovered/Resolved]
  - Nasal ulcer [Recovered/Resolved]
  - Stomatitis [Recovered/Resolved]
